FAERS Safety Report 23210529 (Version 4)
Quarter: 2023Q4

REPORT INFORMATION
  Report Type: Report from Study
  Country: CN (occurrence: CN)
  Receive Date: 20231121
  Receipt Date: 20231226
  Transmission Date: 20240110
  Serious: Yes (Other)
  Sender: FDA-Public Use
  Company Number: CN-002147023-NVSC2023CN121279

PATIENT
  Age: 56 Year
  Sex: Male
  Weight: 68 kg

DRUGS (25)
  1. COSENTYX [Suspect]
     Active Substance: SECUKINUMAB
     Indication: Psoriasis
     Dosage: 300 MG
     Route: 058
     Dates: start: 20220207
  2. COSENTYX [Suspect]
     Active Substance: SECUKINUMAB
     Dosage: 300 MG
     Route: 058
     Dates: start: 20220214
  3. COSENTYX [Suspect]
     Active Substance: SECUKINUMAB
     Dosage: 300 MG
     Route: 058
     Dates: start: 20220220
  4. COSENTYX [Suspect]
     Active Substance: SECUKINUMAB
     Dosage: 300 MG
     Route: 058
     Dates: start: 20220221
  5. COSENTYX [Suspect]
     Active Substance: SECUKINUMAB
     Dosage: 300 MG
     Route: 058
     Dates: start: 20220228
  6. COSENTYX [Suspect]
     Active Substance: SECUKINUMAB
     Dosage: 300 MG
     Route: 058
     Dates: start: 20220314
  7. COSENTYX [Suspect]
     Active Substance: SECUKINUMAB
     Dosage: 300 MG
     Route: 058
     Dates: start: 20220414
  8. COSENTYX [Suspect]
     Active Substance: SECUKINUMAB
     Dosage: 300 MG
     Route: 058
     Dates: start: 20220513
  9. COSENTYX [Suspect]
     Active Substance: SECUKINUMAB
     Dosage: 300 MG
     Route: 058
     Dates: start: 20220611
  10. COSENTYX [Suspect]
     Active Substance: SECUKINUMAB
     Dosage: 300 MG
     Route: 058
     Dates: start: 20220714
  11. COSENTYX [Suspect]
     Active Substance: SECUKINUMAB
     Dosage: 300 MG
     Route: 058
     Dates: start: 20220813
  12. COSENTYX [Suspect]
     Active Substance: SECUKINUMAB
     Dosage: 300 MG
     Route: 058
     Dates: start: 20220914
  13. COSENTYX [Suspect]
     Active Substance: SECUKINUMAB
     Dosage: 300 MG
     Route: 058
     Dates: start: 20221013
  14. COSENTYX [Suspect]
     Active Substance: SECUKINUMAB
     Dosage: 300 MG
     Route: 058
     Dates: start: 20230110
  15. COSENTYX [Suspect]
     Active Substance: SECUKINUMAB
     Dosage: 300 MG
     Route: 058
     Dates: start: 20230213
  16. TOFACITINIB CITRATE [Concomitant]
     Active Substance: TOFACITINIB CITRATE
     Indication: Psoriasis
     Dosage: 5 MG
     Route: 048
     Dates: start: 20220124, end: 202202
  17. COMPOUND GLYCYRRHIZIN [Concomitant]
     Indication: Psoriasis
     Dosage: 50 MG
     Route: 048
     Dates: start: 20220124, end: 202202
  18. CYCLOSPORINE [Concomitant]
     Active Substance: CYCLOSPORINE
     Indication: Psoriasis
     Dosage: 50 MG
     Route: 048
     Dates: start: 20220124, end: 20220128
  19. CYCLOSPORINE [Concomitant]
     Active Substance: CYCLOSPORINE
     Dosage: 125 MG
     Route: 048
     Dates: start: 20220128, end: 202202
  20. LEVAMLODIPINE BESYLATE [Concomitant]
     Active Substance: LEVAMLODIPINE BESYLATE
     Indication: Hypertension
     Dosage: 2.5 MG
     Route: 048
     Dates: start: 20180825
  21. IPRATROPIUM BROMIDE [Concomitant]
     Active Substance: IPRATROPIUM BROMIDE\IPRATROPIUM BROMIDE ANHYDROUS
     Indication: Pneumonitis
     Dosage: 2.5 ML
     Dates: start: 20220305, end: 20220309
  22. ACETYLCYSTEINE [Concomitant]
     Active Substance: ACETYLCYSTEINE
     Indication: Pneumonitis
     Dosage: 0.3 G
     Dates: start: 20220305, end: 20220309
  23. AMBROXOL HYDROCHLORIDE AND SODIUM CHLORIDE [Concomitant]
     Indication: Pneumonitis
     Dosage: 100 ML
     Route: 041
     Dates: start: 20220307, end: 20220309
  24. ACITRETIN [Concomitant]
     Active Substance: ACITRETIN
     Indication: Psoriasis
     Dosage: 30 MG
     Route: 048
     Dates: start: 20180414
  25. ACITRETIN [Concomitant]
     Active Substance: ACITRETIN
     Dosage: 20 MG
     Route: 048
     Dates: start: 20200311

REACTIONS (6)
  - Hypokalaemia [Recovering/Resolving]
  - Poor quality sleep [Recovered/Resolved]
  - Large intestine polyp [Recovering/Resolving]
  - Duodenal polyp [Recovering/Resolving]
  - Chronic gastritis [Recovering/Resolving]
  - Thyroid disorder [Not Recovered/Not Resolved]

NARRATIVE: CASE EVENT DATE: 20220305
